FAERS Safety Report 9174215 (Version 2)
Quarter: 2013Q2

REPORT INFORMATION
  Report Type: Spontaneous
  Country: CN (occurrence: CN)
  Receive Date: 20130320
  Receipt Date: 20130402
  Transmission Date: 20140414
  Serious: Yes (Other)
  Sender: FDA-Public Use
  Company Number: CN-PFIZER INC-2013090982

PATIENT
  Age: 5 Month
  Sex: 0

DRUGS (1)
  1. MEDROL [Suspect]
     Indication: THROMBOCYTOPENIA
     Dosage: 0.5 TABLET THRICE DAILY
     Route: 048

REACTIONS (4)
  - Intracranial pressure increased [Recovering/Resolving]
  - Fontanelle bulging [Unknown]
  - Cushingoid [Unknown]
  - Off label use [Unknown]
